FAERS Safety Report 22218262 (Version 1)
Quarter: 2023Q2

REPORT INFORMATION
  Report Type: Spontaneous
  Country: US (occurrence: US)
  Receive Date: 20230417
  Receipt Date: 20230417
  Transmission Date: 20230721
  Serious: Yes (Other)
  Sender: FDA-Public Use
  Company Number: US-MYLANLABS-2023M1039721

PATIENT
  Age: 59 Year
  Sex: Female
  Weight: 77.11 kg

DRUGS (3)
  1. DEXAMETHASONE SODIUM PHOSPHATE [Suspect]
     Active Substance: DEXAMETHASONE SODIUM PHOSPHATE
     Indication: Product used for unknown indication
     Dosage: GIVEN ALONG WITH THE CEFTRIAXONE AND LIDOCAINE
     Route: 065
  2. LIDOCAINE [Suspect]
     Active Substance: LIDOCAINE
     Indication: Product used for unknown indication
     Dosage: UNK
     Route: 065
  3. CEFTRIAXONE [Suspect]
     Active Substance: CEFTRIAXONE
     Indication: Respiratory disorder
     Dosage: 1G FOR INJECTION, WITH LIDOCAINE, AND WITH DEXAMETHASONE
     Route: 065
     Dates: start: 20230406

REACTIONS (2)
  - Respiratory distress [Unknown]
  - Seizure [Unknown]

NARRATIVE: CASE EVENT DATE: 20230406
